FAERS Safety Report 5023701-3 (Version None)
Quarter: 2006Q2

REPORT INFORMATION
  Report Type: 
  Country: None (occurrence: None)
  Receive Date: 20060606
  Receipt Date: 20060517
  Transmission Date: 20061013
  Serious: Yes (Hospitalization)
  Sender: FDA-Public Use
  Company Number: US200605005313

PATIENT
  Sex: Female

DRUGS (9)
  1. HUMALOG PEN [Suspect]
     Dosage: 3/D, PER SLIDING SCALE
     Dates: start: 20030101
  2. CYMBALTA [Suspect]
     Indication: NERVOUS SYSTEM DISORDER
     Dosage: DAILY (1/D)
     Dates: start: 20040101
  3. HUMULIN 70/30 [Suspect]
     Dates: start: 19910101
  4. TRAVATAN [Concomitant]
  5. ALPHAGAN [Concomitant]
  6. NEXIUM [Concomitant]
  7. LASIX [Concomitant]
  8. LANTUS [Concomitant]
  9. LIPITOR [Concomitant]

REACTIONS (10)
  - AMNESIA [None]
  - BRONCHOPNEUMONIA [None]
  - CEREBROVASCULAR ACCIDENT [None]
  - DEVICE FAILURE [None]
  - IDIOPATHIC THROMBOCYTOPENIC PURPURA [None]
  - INJECTION SITE BRUISING [None]
  - INJECTION SITE PAIN [None]
  - MUSCULAR WEAKNESS [None]
  - NERVOUS SYSTEM DISORDER [None]
  - PHARMACEUTICAL PRODUCT COMPLAINT [None]
